FAERS Safety Report 21184275 (Version 1)
Quarter: 2022Q3

REPORT INFORMATION
  Report Type: Spontaneous
  Country: US (occurrence: None)
  Receive Date: 20220804
  Receipt Date: 20220804
  Transmission Date: 20221027
  Serious: Yes (Death)
  Sender: FDA-Public Use
  Company Number: None

PATIENT
  Age: 19 Year
  Sex: Male
  Weight: 76.5 kg

DRUGS (1)
  1. PSILOCYBINE [Suspect]
     Active Substance: PSILOCYBINE
     Indication: Product used for unknown indication

REACTIONS (3)
  - Intentional self-injury [None]
  - Stab wound [None]
  - Mental disorder [None]

NARRATIVE: CASE EVENT DATE: 20210917
